FAERS Safety Report 13936351 (Version 13)
Quarter: 2018Q1

REPORT INFORMATION
  Report Type: Spontaneous
  Country: US (occurrence: US)
  Receive Date: 20170905
  Receipt Date: 20180219
  Transmission Date: 20180508
  Serious: Yes (Death, Hospitalization, Other)
  Sender: FDA-Public Use
  Company Number: US-GLAXOSMITHKLINE-US2017GSK136962

PATIENT
  Sex: Male
  Weight: 77 kg

DRUGS (11)
  1. FLOLAN [Suspect]
     Active Substance: EPOPROSTENOL SODIUM
     Indication: PULMONARY ARTERIAL HYPERTENSION
     Dosage: 80.7 NG/KG/MIN, CO
     Route: 042
     Dates: start: 20060411
  2. FLOLAN [Suspect]
     Active Substance: EPOPROSTENOL SODIUM
     Dosage: UNK
  3. REVATIO [Concomitant]
     Active Substance: SILDENAFIL CITRATE
  4. FLOLAN [Suspect]
     Active Substance: EPOPROSTENOL SODIUM
     Dosage: 80.7 DF, CO
     Route: 042
  5. FLOLAN [Suspect]
     Active Substance: EPOPROSTENOL SODIUM
     Dosage: 93 NG/KG/MIN, CO
  6. FLOLAN [Suspect]
     Active Substance: EPOPROSTENOL SODIUM
     Dosage: 90 NG/KG/MIN CONTINUOUS
     Route: 042
  7. FLOLAN [Suspect]
     Active Substance: EPOPROSTENOL SODIUM
     Dosage: UNK
     Route: 042
  8. FLOLAN [Suspect]
     Active Substance: EPOPROSTENOL SODIUM
     Dosage: UNK
  9. SILDENAFIL CITRATE. [Concomitant]
     Active Substance: SILDENAFIL CITRATE
  10. FLOLAN [Suspect]
     Active Substance: EPOPROSTENOL SODIUM
     Dosage: 93 NG/KG/MIN, CO
  11. FLOLAN [Suspect]
     Active Substance: EPOPROSTENOL SODIUM
     Indication: PULMONARY ARTERIAL HYPERTENSION
     Dosage: UNK
     Dates: start: 20170406

REACTIONS (14)
  - Cardiac disorder [Unknown]
  - Ascites [Unknown]
  - Cardiac failure [Unknown]
  - Death [Fatal]
  - Fluid retention [Unknown]
  - Weight increased [Unknown]
  - Abdominal pain [Unknown]
  - Hospitalisation [Recovered/Resolved]
  - Renal impairment [Unknown]
  - Pulmonary arterial hypertension [Unknown]
  - Weight decreased [Unknown]
  - Condition aggravated [Unknown]
  - Paracentesis [Unknown]
  - Abdominal hernia [Unknown]
